FAERS Safety Report 16761861 (Version 2)
Quarter: 2020Q1

REPORT INFORMATION
  Report Type: Spontaneous
  Country: US (occurrence: US)
  Receive Date: 20190830
  Receipt Date: 20200327
  Transmission Date: 20200409
  Serious: Yes (Other)
  Sender: FDA-Public Use
  Company Number: US-GILEAD-2019-0425672

PATIENT
  Age: 56 Year
  Sex: Male
  Weight: 82.54 kg

DRUGS (42)
  1. TEGRETOL [Concomitant]
     Active Substance: CARBAMAZEPINE
  2. ROSUVASTATIN. [Concomitant]
     Active Substance: ROSUVASTATIN
  3. LIDODERM [Concomitant]
     Active Substance: LIDOCAINE
  4. ZOCOR [Concomitant]
     Active Substance: SIMVASTATIN
  5. ZANTAC [Concomitant]
     Active Substance: RANITIDINE HYDROCHLORIDE
  6. VOLTAREN [DICLOFENAC] [Concomitant]
     Active Substance: DICLOFENAC SODIUM
  7. NIFEDICAL XL [Concomitant]
     Active Substance: NIFEDIPINE
  8. DIOVAN [Concomitant]
     Active Substance: VALSARTAN
  9. METRONIDAZOLE. [Concomitant]
     Active Substance: METRONIDAZOLE
  10. ZIAGEN [Concomitant]
     Active Substance: ABACAVIR SULFATE
  11. LISINOPRIL. [Concomitant]
     Active Substance: LISINOPRIL
  12. MUCINEX [Concomitant]
     Active Substance: GUAIFENESIN
  13. MARIJUANA [Concomitant]
     Active Substance: CANNABIS SATIVA SUBSP. INDICA TOP
  14. COMBIVIR [Concomitant]
     Active Substance: LAMIVUDINE\ZIDOVUDINE
  15. COREG [Concomitant]
     Active Substance: CARVEDILOL
  16. CATAPRES-TTS [Concomitant]
     Active Substance: CLONIDINE
  17. FLONASE [Concomitant]
     Active Substance: FLUTICASONE PROPIONATE
  18. PEG 3350 [Concomitant]
     Active Substance: POLYETHYLENE GLYCOL 3350
  19. DILAUDID [Concomitant]
     Active Substance: HYDROMORPHONE HYDROCHLORIDE
  20. MARINOL [ALLOPURINOL] [Concomitant]
     Active Substance: ALLOPURINOL
  21. ATRIPLA [Suspect]
     Active Substance: EFAVIRENZ\EMTRICITABINE\TENOFOVIR DISOPROXIL FUMARATE
     Indication: HIV INFECTION
     Dosage: UNK
     Route: 048
     Dates: start: 200909, end: 201410
  22. TIVICAY [Concomitant]
     Active Substance: DOLUTEGRAVIR SODIUM
  23. DRISDOL [Concomitant]
     Active Substance: ERGOCALCIFEROL
  24. LOFIBRA [FENOFIBRATE] [Concomitant]
  25. RETROVIR [Concomitant]
     Active Substance: ZIDOVUDINE
  26. PROCARDIA [Concomitant]
     Active Substance: NIFEDIPINE
  27. VIRAMUNE [Concomitant]
     Active Substance: NEVIRAPINE
  28. ZYLOPRIM [Concomitant]
     Active Substance: ALLOPURINOL
  29. MITIGARE [Concomitant]
     Active Substance: COLCHICINE
  30. BISACODYL EG [Concomitant]
  31. SUCRALFATE. [Concomitant]
     Active Substance: SUCRALFATE
  32. HYDROCHLOROTHIAZIDE. [Concomitant]
     Active Substance: HYDROCHLOROTHIAZIDE
  33. DOLUTEGRAVIR [Concomitant]
     Active Substance: DOLUTEGRAVIR
  34. LOVAZA [Concomitant]
     Active Substance: OMEGA-3-ACID ETHYL ESTERS
  35. PREDNISONE. [Concomitant]
     Active Substance: PREDNISONE
  36. EXFORGE [Concomitant]
     Active Substance: AMLODIPINE BESYLATE\VALSARTAN
  37. VIREAD [Suspect]
     Active Substance: TENOFOVIR DISOPROXIL FUMARATE
     Indication: HIV INFECTION
     Dosage: UNK
     Route: 065
     Dates: start: 2006, end: 2009
  38. EPIVIR [Concomitant]
     Active Substance: LAMIVUDINE
  39. TRIUMEQ [Concomitant]
     Active Substance: ABACAVIR SULFATE\DOLUTEGRAVIR SODIUM\LAMIVUDINE
  40. DIOVAN HCT [Concomitant]
     Active Substance: HYDROCHLOROTHIAZIDE\VALSARTAN
  41. CRESTOR [Concomitant]
     Active Substance: ROSUVASTATIN CALCIUM
  42. ZIAC [BISOPROLOL FUMARATE;HYDROCHLOROTHIAZIDE] [Concomitant]

REACTIONS (7)
  - Anxiety [Not Recovered/Not Resolved]
  - Multiple injuries [Unknown]
  - Chronic kidney disease [Not Recovered/Not Resolved]
  - Emotional distress [Not Recovered/Not Resolved]
  - Anhedonia [Not Recovered/Not Resolved]
  - Pain [Not Recovered/Not Resolved]
  - Economic problem [Not Recovered/Not Resolved]

NARRATIVE: CASE EVENT DATE: 20140718
